FAERS Safety Report 10077098 (Version 1)
Quarter: 2014Q2

REPORT INFORMATION
  Report Type: Spontaneous
  Country: US (occurrence: US)
  Receive Date: 20140414
  Receipt Date: 20140414
  Transmission Date: 20141212
  Serious: Yes (Death, Other)
  Sender: FDA-Public Use
  Company Number: US-ROXANE LABORATORIES, INC.-2014-RO-00596RO

PATIENT
  Age: 55 Year
  Sex: Female

DRUGS (3)
  1. DEXAMETHASONE [Suspect]
     Indication: GRANULOMA
     Dosage: 16 MG
     Route: 065
  2. PREDNISONE [Suspect]
     Indication: GRANULOMA
     Route: 048
  3. PREDNISONE [Suspect]
     Dosage: 80 MG
     Route: 048

REACTIONS (3)
  - Death [Fatal]
  - Myopathy [Unknown]
  - Substance-induced psychotic disorder [Unknown]
